FAERS Safety Report 10017987 (Version 1)
Quarter: 2014Q1

REPORT INFORMATION
  Report Type: Spontaneous
  Country: FR (occurrence: FR)
  Receive Date: 20140318
  Receipt Date: 20140318
  Transmission Date: 20141002
  Serious: Yes (Disabling)
  Sender: FDA-Public Use
  Company Number: FR-BRISTOL-MYERS SQUIBB COMPANY-20515979

PATIENT
  Age: 68 Year
  Sex: Female

DRUGS (8)
  1. METFORMIN HCL [Suspect]
     Indication: TYPE 2 DIABETES MELLITUS
     Route: 048
  2. LEVOTHYROX [Suspect]
     Indication: THYROIDECTOMY
     Dosage: 100 MCG?BEFORE 2001?TABLET
     Route: 048
  3. ATORVASTATIN [Suspect]
     Indication: ARTERIAL OCCLUSIVE DISEASE
     Route: 048
     Dates: start: 2008
  4. NEBILOX [Suspect]
     Indication: HYPERTENSION
     Dosage: 5MG CROSS SCORED TABLET AT A DOSE OF 1 DOSAGE
     Route: 048
     Dates: start: 200911
  5. LANSOPRAZOLE [Suspect]
     Route: 048
     Dates: start: 2010
  6. COAPROVEL TABS 300MG/12.5MG [Suspect]
     Indication: HYPERTENSION
     Dosage: 1 DF=300MG/12.5 MG
     Route: 048
     Dates: start: 200902
  7. LORAZEPAM [Suspect]
     Indication: ANXIETY
     Route: 048
     Dates: start: 2011
  8. PLAVIX [Suspect]
     Indication: ARTERIAL OCCLUSIVE DISEASE
     Dosage: 75 MG, FILM-COATED TABS
     Route: 048
     Dates: start: 2004

REACTIONS (1)
  - Osteonecrosis [Recovered/Resolved with Sequelae]
